FAERS Safety Report 15760951 (Version 3)
Quarter: 2019Q2

REPORT INFORMATION
  Report Type: Spontaneous
  Country: US (occurrence: US)
  Receive Date: 20181226
  Receipt Date: 20190416
  Transmission Date: 20190711
  Serious: Yes (Hospitalization, Other)
  Sender: FDA-Public Use
  Company Number: US-PFIZER INC-2018529097

PATIENT
  Age: 62 Year
  Sex: Female

DRUGS (1)
  1. SUTENT [Suspect]
     Active Substance: SUNITINIB MALATE
     Indication: RENAL CELL CARCINOMA
     Dosage: 50 MG, DAILY
     Route: 048
     Dates: start: 201811, end: 20190111

REACTIONS (4)
  - Gastrointestinal perforation [Recovered/Resolved]
  - Neck pain [Unknown]
  - Intestinal obstruction [Unknown]
  - Sepsis [Unknown]

NARRATIVE: CASE EVENT DATE: 20190111
